FAERS Safety Report 7838098 (Version 7)
Quarter: 2013Q1

REPORT INFORMATION
  Report Type: Spontaneous
  Country: US (occurrence: US)
  Receive Date: 20110302
  Receipt Date: 20130314
  Transmission Date: 20140127
  Serious: Yes (Other)
  Sender: FDA-Public Use
  Company Number: US-BAYER-2011-017927

PATIENT
  Sex: Male
  Weight: 83 kg

DRUGS (60)
  1. MAGNEVIST [Suspect]
     Indication: NUCLEAR MAGNETIC RESONANCE IMAGING
     Dosage: 20 ML, ONCE
     Route: 042
     Dates: start: 19980518, end: 19980518
  2. MAGNEVIST [Suspect]
     Indication: ANGIOGRAM
  3. MAGNEVIST [Suspect]
     Indication: NUCLEAR MAGNETIC RESONANCE IMAGING BRAIN
  4. MAGNEVIST [Suspect]
     Indication: NUCLEAR MAGNETIC RESONANCE IMAGING
  5. OPTIMARK [Suspect]
     Indication: NUCLEAR MAGNETIC RESONANCE IMAGING
  6. OPTIMARK [Suspect]
     Indication: ANGIOGRAM
  7. OMNISCAN [Suspect]
     Indication: NUCLEAR MAGNETIC RESONANCE IMAGING
  8. OMNISCAN [Suspect]
     Indication: ANGIOGRAM
  9. MULTIHANCE [GADOBENIC ACID MEGLUMINE] [Suspect]
     Indication: NUCLEAR MAGNETIC RESONANCE IMAGING
  10. MULTIHANCE [GADOBENIC ACID MEGLUMINE] [Suspect]
     Indication: ANGIOGRAM
  11. PROHANCE [GADOTERIDOL] [Suspect]
     Indication: NUCLEAR MAGNETIC RESONANCE IMAGING
  12. PROHANCE [GADOTERIDOL] [Suspect]
     Indication: ANGIOGRAM
  13. DEMADEX [Concomitant]
  14. COVERA-HS [Concomitant]
  15. EPOGEN [Concomitant]
  16. LASIX [FUROSEMIDE] [Concomitant]
  17. K-DUR [Concomitant]
  18. NORVASC [Concomitant]
  19. NORVASC [Concomitant]
  20. HYDRALAZINE [Concomitant]
  21. MONOPRIL [Concomitant]
  22. PHOSLO [Concomitant]
  23. NEPHROCAPS [VIT C,VIT H,B12,B9,B3,PANTOTHEN AC,B6,B2,B1 HCL] [Concomitant]
  24. PEPCID [FAMOTIDINE] [Concomitant]
  25. CATAPRES [Concomitant]
  26. MECLIZINE [Concomitant]
  27. PREDNISONE [Concomitant]
  28. CYTOXAN [Concomitant]
  29. ZAROXOLYN [Concomitant]
  30. DIURIL [Concomitant]
  31. ANCEF [Concomitant]
  32. DARVOCET [Concomitant]
  33. TYLENOL [PARACETAMOL] [Concomitant]
  34. ACCUPRIL [Concomitant]
  35. VERAPAMIL [Concomitant]
  36. PERCOCET [OXYCODONE HYDROCHLORIDE,PARACETAMOL] [Concomitant]
  37. NEURONTIN [Concomitant]
  38. DIOVAN [VALSARTAN] [Concomitant]
  39. PLAVIX [Concomitant]
  40. PREVACID [Concomitant]
  41. LOPRESSOR [Concomitant]
  42. NEXIUM [Concomitant]
  43. LIPITOR [Concomitant]
  44. FLOMAX [TAMSULOSIN HYDROCHLORIDE] [Concomitant]
  45. ASPIRIN [ACETYLSALICYLIC ACID] [Concomitant]
  46. SENSIPAR [Concomitant]
  47. RENAGEL [SEVELAMER] [Concomitant]
  48. KAYEXALATE [Concomitant]
  49. NOVOLIN [INSULIN] [Concomitant]
  50. AMIODARONE [Concomitant]
  51. COUMADIN [Concomitant]
  52. VITAMIN C [ASCORBIC ACID] [Concomitant]
  53. CLONIDINE [Concomitant]
  54. FISH OIL [Concomitant]
  55. SODIUM POLYSTYRENE SULFONATE [Concomitant]
  56. HUMULIN [INSULIN HUMAN INJECTION, ISOPHANE] [Concomitant]
  57. WARFARIN [Concomitant]
  58. RENVELA [Concomitant]
  59. LEVOTHYROXINE [Concomitant]
  60. PROCRIT [Concomitant]

REACTIONS (15)
  - Nephrogenic systemic fibrosis [None]
  - Pain [None]
  - Oedema peripheral [None]
  - Skin discolouration [None]
  - Dry skin [None]
  - Rash [None]
  - Skin tightness [None]
  - Pruritus [None]
  - Skin hypertrophy [None]
  - Joint range of motion decreased [None]
  - Stasis dermatitis [None]
  - Muscular weakness [None]
  - Musculoskeletal disorder [None]
  - Anhedonia [None]
  - Orthostatic hypotension [None]
